FAERS Safety Report 4492741-5 (Version None)
Quarter: 2004Q4

REPORT INFORMATION
  Report Type: 
  Country: None (occurrence: None)
  Receive Date: 20041102
  Receipt Date: 20041102
  Transmission Date: 20050328
  Serious: Yes (Hospitalization)
  Sender: FDA-Public Use
  Company Number: None

PATIENT
  Age: 77 Year
  Sex: Male
  Weight: 96.1626 kg

DRUGS (1)
  1. GEMFIBROZIL [Suspect]
     Indication: HYPERCHOLESTEROLAEMIA
     Dosage: 600 MG BID ORAL
     Route: 048
     Dates: start: 20040626, end: 20040626

REACTIONS (5)
  - FEELING ABNORMAL [None]
  - MYALGIA [None]
  - NAUSEA [None]
  - STOMACH DISCOMFORT [None]
  - VOMITING [None]
